FAERS Safety Report 18442513 (Version 41)
Quarter: 2024Q3

REPORT INFORMATION
  Report Type: Report from Study
  Country: MX (occurrence: MX)
  Receive Date: 20201029
  Receipt Date: 20240905
  Transmission Date: 20241016
  Serious: Yes (Hospitalization, Other)
  Sender: TAKEDA
  Company Number: MX-TAKEDA-MX202029215

PATIENT
  Age: 3 Year
  Sex: Male
  Weight: 38.5 kg

DRUGS (7)
  1. IDURSULFASE [Suspect]
     Active Substance: IDURSULFASE
     Indication: Mucopolysaccharidosis II
     Dosage: 1 DOSAGE FORM
     Route: 042
     Dates: start: 20180306
  2. IDURSULFASE [Suspect]
     Active Substance: IDURSULFASE
     Dosage: 2 DOSAGE FORM, 1/WEEK
     Route: 042
  3. IDURSULFASE [Suspect]
     Active Substance: IDURSULFASE
     Dosage: 12 MILLIGRAM, 1/WEEK
     Route: 042
  4. IDURSULFASE [Suspect]
     Active Substance: IDURSULFASE
     Dosage: 3 DOSAGE FORM, 1/WEEK
     Route: 042
  5. IDURSULFASE [Suspect]
     Active Substance: IDURSULFASE
     Dosage: 3 DOSAGE FORM, 1/WEEK
     Route: 042
  6. IDURSULFASE [Suspect]
     Active Substance: IDURSULFASE
     Dosage: 3 DOSAGE FORM, 1/WEEK
     Route: 042
  7. IDURSULFASE [Suspect]
     Active Substance: IDURSULFASE
     Dosage: 3 DOSAGE FORM, 1/WEEK
     Route: 042

REACTIONS (25)
  - Burns second degree [Recovering/Resolving]
  - Accident [Recovering/Resolving]
  - Viral pharyngitis [Not Recovered/Not Resolved]
  - Rhinorrhoea [Recovering/Resolving]
  - Sneezing [Not Recovered/Not Resolved]
  - Productive cough [Not Recovered/Not Resolved]
  - Infusion site haemorrhage [Recovering/Resolving]
  - Infusion site discharge [Recovering/Resolving]
  - Pain [Unknown]
  - Insomnia [Unknown]
  - Product availability issue [Unknown]
  - Product dose omission issue [Not Recovered/Not Resolved]
  - Inappropriate schedule of product administration [Unknown]
  - Incorrect dose administered [Unknown]
  - Abdominal pain upper [Unknown]
  - Diarrhoea [Not Recovered/Not Resolved]
  - Nausea [Not Recovered/Not Resolved]
  - Circumstance or information capable of leading to medication error [Unknown]
  - Influenza [Recovering/Resolving]
  - Illness [Recovering/Resolving]
  - Fall [Recovering/Resolving]
  - Face injury [Recovering/Resolving]
  - Nasal congestion [Not Recovered/Not Resolved]
  - Cough [Not Recovered/Not Resolved]
  - Pyrexia [Not Recovered/Not Resolved]

NARRATIVE: CASE EVENT DATE: 20200903
